FAERS Safety Report 11538174 (Version 1)
Quarter: 2015Q3

REPORT INFORMATION
  Report Type: Spontaneous
  Country: US (occurrence: US)
  Receive Date: 20150922
  Receipt Date: 20150922
  Transmission Date: 20151125
  Serious: Yes (Other)
  Sender: FDA-Public Use
  Company Number: ALCN2015US005684

PATIENT
  Age: 81 Year
  Sex: Female

DRUGS (1)
  1. FLUORESCITE [Suspect]
     Active Substance: FLUORESCEIN SODIUM
     Indication: VISUAL IMPAIRMENT
     Dosage: UNK
     Route: 042
     Dates: start: 201211, end: 201211

REACTIONS (12)
  - Ocular discomfort [Recovering/Resolving]
  - Visual acuity reduced [Not Recovered/Not Resolved]
  - Tremor [Recovering/Resolving]
  - Peripheral swelling [Recovered/Resolved]
  - Abdominal discomfort [Recovered/Resolved]
  - Diplopia [Recovering/Resolving]
  - Vision blurred [Not Recovered/Not Resolved]
  - Blepharospasm [Recovering/Resolving]
  - Muscle twitching [Recovering/Resolving]
  - Photopsia [Recovering/Resolving]
  - Skin discolouration [Recovered/Resolved]
  - Off label use [Unknown]

NARRATIVE: CASE EVENT DATE: 201211
